FAERS Safety Report 8506584-6 (Version None)
Quarter: 2012Q3

REPORT INFORMATION
  Report Type: 
  Country: None (occurrence: None)
  Receive Date: 20120712
  Receipt Date: 20120702
  Transmission Date: 20120928
  Serious: Yes (Hospitalization)
  Sender: FDA-Public Use
  Company Number: JP-BRISTOL-MYERS SQUIBB COMPANY-16743320

PATIENT
  Age: 75 Year
  Sex: Male

DRUGS (6)
  1. AMLODIPINE [Concomitant]
     Route: 048
  2. ALLOPURINOL [Concomitant]
     Route: 048
  3. ALDOMET [Concomitant]
     Route: 048
  4. CRESTOR [Concomitant]
     Route: 048
  5. AVAPRO [Suspect]
     Indication: HYPERTENSION
     Route: 048
     Dates: start: 20120618, end: 20120623
  6. PLETAL [Concomitant]
     Route: 048

REACTIONS (3)
  - BLOOD CREATININE INCREASED [None]
  - EOSINOPHIL COUNT INCREASED [None]
  - DIARRHOEA [None]
